FAERS Safety Report 6960654 (Version 4)
Quarter: 2014Q1

REPORT INFORMATION
  Report Type: Report from Study
  Country: JP (occurrence: JP)
  Receive Date: 20090403
  Receipt Date: 20140228
  Transmission Date: 20141002
  Serious: Yes (Death, Hospitalization, Other)
  Sender: FDA-Public Use
  Company Number: PHHY2009JP12009

PATIENT
  Age: 81 Year
  Sex: Male
  Weight: 45 kg

DRUGS (15)
  1. ICL670A [Suspect]
     Indication: APLASTIC ANAEMIA
     Dosage: 500 MG, DAILY
     Route: 048
     Dates: start: 20080920, end: 20090402
  2. ICL670A [Suspect]
     Dosage: 1000 MG, DAILY
     Route: 048
     Dates: start: 20090403, end: 20100914
  3. ICL670A [Suspect]
     Dosage: 1000 MG, DAILY
     Route: 048
     Dates: start: 20120920, end: 20130524
  4. NEORAL [Suspect]
     Indication: APLASTIC ANAEMIA
  5. PRIMOBOLAN [Concomitant]
     Dosage: 20 MG,
     Route: 048
     Dates: start: 20070706, end: 20100914
  6. TAKEPRON [Concomitant]
     Dosage: 15 MG,
     Route: 048
     Dates: start: 20070928, end: 20091002
  7. TAKEPRON [Concomitant]
     Dosage: 15 MG,
     Route: 048
     Dates: end: 20130614
  8. MUCOSTA [Concomitant]
     Dosage: 300 MG,
     Route: 048
     Dates: start: 20070928, end: 20100914
  9. RED BLOOD CELLS, CONCENTRATED [Concomitant]
     Dosage: 2 U, EVERY 2 WEEKS
     Dates: start: 20081003, end: 20090120
  10. RED BLOOD CELLS, CONCENTRATED [Concomitant]
     Dosage: 2 U, EVERY 2 WEEKS
     Dates: start: 20090127, end: 20090319
  11. RED BLOOD CELLS, CONCENTRATED [Concomitant]
     Dosage: 2 U, EVERY 2 WEEK
     Dates: start: 20120920, end: 20130621
  12. PLATELET CONCENTRATE [Concomitant]
     Dosage: 10 U, EVERY WEEK
     Dates: start: 20120920, end: 20130621
  13. EBASTEL [Concomitant]
     Dosage: 10 MG, UNK
     Route: 048
     Dates: start: 20120920, end: 20130614
  14. RISPERDAL [Concomitant]
     Indication: DEMENTIA ALZHEIMER^S TYPE
     Dosage: 1 MG, UNK
     Route: 048
     Dates: start: 20120920, end: 20130614
  15. ARICEPT [Concomitant]
     Indication: DEMENTIA ALZHEIMER^S TYPE
     Dosage: 5 MG, UNK
     Route: 048
     Dates: start: 20120920, end: 20130614

REACTIONS (6)
  - Aplastic anaemia [Fatal]
  - Condition aggravated [Fatal]
  - Pyelonephritis acute [Not Recovered/Not Resolved]
  - Epistaxis [Recovered/Resolved]
  - Anaemia [Recovered/Resolved]
  - Blood creatinine increased [Recovering/Resolving]
